FAERS Safety Report 9786026 (Version 2)
Quarter: 2014Q1

REPORT INFORMATION
  Report Type: Spontaneous
  Country: CH (occurrence: CH)
  Receive Date: 20131227
  Receipt Date: 20140108
  Transmission Date: 20141002
  Serious: Yes (Hospitalization, Other)
  Sender: FDA-Public Use
  Company Number: CH-PFIZER INC-2013369497

PATIENT
  Age: 61 Year
  Sex: Male

DRUGS (4)
  1. PANTOZOL [Suspect]
     Indication: GASTROOESOPHAGEAL REFLUX DISEASE
     Dosage: 40 MG, 1X/DAY
     Route: 048
     Dates: start: 20131008, end: 20131108
  2. PANTOZOL [Suspect]
     Indication: OESOPHAGITIS
  3. TAVEGYL [Suspect]
     Indication: OEDEMA
     Dosage: 2 MG, SINGLE
     Route: 042
     Dates: start: 20131108, end: 20131108
  4. SPIRULINA [Concomitant]
     Dosage: UNK

REACTIONS (9)
  - Oedema mouth [Recovered/Resolved]
  - Hypotension [Recovered/Resolved]
  - Bradycardia [Recovered/Resolved]
  - Angioedema [Recovered/Resolved]
  - Malaise [Recovered/Resolved]
  - Nausea [Recovered/Resolved]
  - Dizziness [Recovered/Resolved]
  - Dry mouth [Recovered/Resolved]
  - Syncope [Recovered/Resolved]
